FAERS Safety Report 9797723 (Version 2)
Quarter: 2014Q1

REPORT INFORMATION
  Report Type: Spontaneous
  Country: FR (occurrence: None)
  Receive Date: 20131231
  Receipt Date: 20140116
  Transmission Date: 20141002
  Serious: Yes (Death)
  Sender: FDA-Public Use
  Company Number: 2100092

PATIENT
  Age: 73 Year
  Sex: Male

DRUGS (13)
  1. VINCRISTINE SULFATE [Suspect]
     Indication: T-CELL LYMPHOMA
     Dosage: 1 COURSE
     Route: 042
     Dates: start: 20131030, end: 20131030
  2. GEMZAR [Suspect]
     Indication: T-CELL LYMPHOMA
     Dosage: 5 COURSES
     Route: 042
     Dates: start: 20130819, end: 20131016
  3. OXALIPLATIN [Suspect]
     Indication: T-CELL LYMPHOMA
     Dosage: 5 COURSES
     Route: 042
     Dates: start: 20130819, end: 20131016
  4. ENDOXAN /00021101/ [Suspect]
     Indication: T-CELL LYMPHOMA
     Dosage: 1 COURSE
     Route: 042
     Dates: start: 20131030, end: 20131030
  5. ADRIBLASTINE [Suspect]
     Indication: T-CELL LYMPHOMA
     Dosage: 1 COURSE
     Route: 042
     Dates: start: 20131030, end: 20131030
  6. KARDEGIC [Concomitant]
  7. LASILIX /00032601/ [Concomitant]
  8. EUPANTOL [Concomitant]
  9. TRIATEC /00885601/ [Concomitant]
  10. PROCORALAN [Concomitant]
  11. SOLUPRED /00016201/ [Concomitant]
  12. STILNOX [Concomitant]
  13. SOLUMEDROL [Suspect]
     Indication: T-CELL LYMPHOMA
     Dosage: 1 COURSE
     Route: 042
     Dates: start: 20131030, end: 20131103

REACTIONS (16)
  - Lung disorder [None]
  - Chlamydia test positive [None]
  - Candida test positive [None]
  - Ischaemic cardiomyopathy [None]
  - Neuropathy peripheral [None]
  - Cold type haemolytic anaemia [None]
  - Drug ineffective [None]
  - T-cell lymphoma [None]
  - Aplasia [None]
  - Inflammation [None]
  - Pancytopenia [None]
  - Septic shock [None]
  - Arrhythmia [None]
  - Oxygen saturation decreased [None]
  - Apnoea [None]
  - Pulmonary toxicity [None]
